FAERS Safety Report 9759610 (Version 1)
Quarter: 2013Q4

REPORT INFORMATION
  Report Type: Spontaneous
  Country: US (occurrence: US)
  Receive Date: 20131216
  Receipt Date: 20131216
  Transmission Date: 20140711
  Serious: No
  Sender: FDA-Public Use
  Company Number: US-GILEAD-2010-0028289

PATIENT
  Age: 57 Year
  Sex: Male
  Weight: 95.25 kg

DRUGS (6)
  1. LETAIRIS [Suspect]
     Indication: PULMONARY ARTERIAL HYPERTENSION
     Route: 048
     Dates: start: 20100210
  2. REVATIO [Concomitant]
  3. LANOXIN [Concomitant]
  4. COUMADIN [Concomitant]
  5. VITAMIN D3 [Concomitant]
  6. CENTRUM SILVER [Concomitant]

REACTIONS (1)
  - Local swelling [Not Recovered/Not Resolved]
